FAERS Safety Report 9272357 (Version 1)
Quarter: 2013Q2

REPORT INFORMATION
  Report Type: Spontaneous
  Country: US (occurrence: US)
  Receive Date: 20130506
  Receipt Date: 20130506
  Transmission Date: 20140414
  Serious: Yes (Other)
  Sender: FDA-Public Use
  Company Number: US-AMGEN-USASP2013031061

PATIENT
  Age: 0 Year
  Sex: Male

DRUGS (1)
  1. ENBREL [Suspect]
     Dosage: 50 MG, QWK
     Route: 064
     Dates: start: 20110629

REACTIONS (3)
  - Foetal heart rate decreased [Recovered/Resolved]
  - Increased appetite [Not Recovered/Not Resolved]
  - Exposure during breast feeding [Unknown]
